FAERS Safety Report 5672285-5 (Version None)
Quarter: 2008Q1

REPORT INFORMATION
  Report Type: 
  Country: None (occurrence: None)
  Receive Date: 20080319
  Receipt Date: 20080313
  Transmission Date: 20080703
  Serious: Yes (Congenital Anomaly)
  Sender: FDA-Public Use
  Company Number: PHFR2008GB01100

PATIENT
  Sex: Male

DRUGS (3)
  1. CARBAMAZEPINE [Suspect]
     Dosage: MATERNAL DOSE 200MG TID
     Route: 064
  2. SUBUTEX [Concomitant]
     Route: 062
  3. ZOPICLONE [Concomitant]
     Route: 064

REACTIONS (1)
  - TALIPES [None]
